FAERS Safety Report 4344365-8 (Version None)
Quarter: 2004Q2

REPORT INFORMATION
  Report Type: 
  Country: None (occurrence: None)
  Receive Date: 20040420
  Receipt Date: 20040407
  Transmission Date: 20050107
  Serious: Yes (Hospitalization)
  Sender: FDA-Public Use
  Company Number: 2004205528FR

PATIENT
  Age: 75 Year
  Sex: Female
  Weight: 95 kg

DRUGS (6)
  1. ZYVOX [Suspect]
     Indication: ERYSIPELAS
     Dosage: 600 MG, BID, ORAL
     Route: 048
     Dates: start: 20040210
  2. DIGOXIN [Concomitant]
  3. LASIX [Concomitant]
  4. SINTROM [Concomitant]
  5. TARGOCID [Concomitant]
  6. CLAMOXYL [Concomitant]

REACTIONS (2)
  - AGITATION [None]
  - HALLUCINATION, VISUAL [None]
